FAERS Safety Report 10077378 (Version 2)
Quarter: 2014Q2

REPORT INFORMATION
  Report Type: Spontaneous
  Country: US (occurrence: US)
  Receive Date: 20140414
  Receipt Date: 20140414
  Transmission Date: 20141212
  Serious: No
  Sender: FDA-Public Use
  Company Number: US-BANPHARM-20131438

PATIENT
  Age: 87 Year
  Sex: Female
  Weight: 65.32 kg

DRUGS (4)
  1. ALEVE LIQUID GELS 220 MG [Suspect]
     Indication: BACK PAIN
     Route: 048
     Dates: start: 201305
  2. CHOLESTEROL MEDICATION [Concomitant]
  3. HEART MEDICATIONS [Concomitant]
  4. BAYER ASPIRIN 325 MG [Concomitant]

REACTIONS (1)
  - Drug effect incomplete [Unknown]
